FAERS Safety Report 16361574 (Version 2)
Quarter: 2019Q2

REPORT INFORMATION
  Report Type: Spontaneous
  Country: US (occurrence: US)
  Receive Date: 20190528
  Receipt Date: 20190530
  Transmission Date: 20190711
  Serious: No
  Sender: FDA-Public Use
  Company Number: US-PFIZER INC-2019216543

PATIENT
  Age: 72 Year
  Sex: Male
  Weight: 68.27 kg

DRUGS (4)
  1. SILDENAFIL CITRATE. [Suspect]
     Active Substance: SILDENAFIL CITRATE
     Indication: ERECTILE DYSFUNCTION
     Dosage: 50 MG, UNK
  2. VIAGRA [Suspect]
     Active Substance: SILDENAFIL CITRATE
     Dosage: UNK, AS NEEDED (50 MG TABLET BY MOUTH AS NEEDED, BUT HIS DOCTOR SAID TO CUT IN HALF BECAUSE OF COST
     Route: 048
  3. SILDENAFIL CITRATE. [Suspect]
     Active Substance: SILDENAFIL CITRATE
     Dosage: UNK, AS NEEDED (50 MG TABLET BY MOUTH AS NEEDED, BUT HIS DOCTOR SAID TO CUT IN HALF BECAUSE OF COST
     Route: 048
  4. VIAGRA [Suspect]
     Active Substance: SILDENAFIL CITRATE
     Indication: ERECTILE DYSFUNCTION
     Dosage: 50 MG, UNK

REACTIONS (1)
  - Product dispensing error [Unknown]
